FAERS Safety Report 19398214 (Version 1)
Quarter: 2021Q2

REPORT INFORMATION
  Report Type: Spontaneous
  Country: US (occurrence: US)
  Receive Date: 20210610
  Receipt Date: 20210610
  Transmission Date: 20210717
  Serious: No
  Sender: FDA-Public Use
  Company Number: US-BAYER-2021-155718

PATIENT
  Age: 60 Year
  Sex: Female

DRUGS (1)
  1. CLARITIN LIQUI?GELS [Suspect]
     Active Substance: LORATADINE
     Dosage: 1 DF
     Route: 048
     Dates: start: 2021, end: 2021

REACTIONS (2)
  - Drug ineffective [Unknown]
  - Extra dose administered [Unknown]

NARRATIVE: CASE EVENT DATE: 2021
